FAERS Safety Report 23346362 (Version 1)
Quarter: 2023Q4

REPORT INFORMATION
  Report Type: Spontaneous
  Country: None (occurrence: US)
  Receive Date: 20231228
  Receipt Date: 20231228
  Transmission Date: 20240110
  Serious: Yes (Life-Threatening, Hospitalization, Other)
  Sender: FDA-Public Use
  Company Number: US-Oxford Pharmaceuticals, LLC-2149873

PATIENT
  Age: 12 Year
  Sex: Female
  Weight: 63 kg

DRUGS (1)
  1. AMLODIPINE BESYLATE [Suspect]
     Active Substance: AMLODIPINE BESYLATE
     Indication: Product used for unknown indication

REACTIONS (4)
  - Intentional overdose [Unknown]
  - Distributive shock [Recovering/Resolving]
  - Toxicity to various agents [Recovering/Resolving]
  - Multiple organ dysfunction syndrome [Recovering/Resolving]
